FAERS Safety Report 6148883-1 (Version None)
Quarter: 2009Q2

REPORT INFORMATION
  Report Type: 
  Country: None (occurrence: None)
  Receive Date: 20090407
  Receipt Date: 20090324
  Transmission Date: 20091009
  Serious: Yes (Other)
  Sender: FDA-Public Use
  Company Number: B0568105A

PATIENT
  Sex: 0

DRUGS (2)
  1. HYCAMTIN [Suspect]
     Indication: NEOPLASM MALIGNANT
     Dosage: INTRAVENOUS
     Route: 042
  2. LAPATINIB (FORMULATION UNKNOWN) (LAPATINIB) [Suspect]
     Indication: NEOPLASM MALIGNANT
     Dosage: ORAL
     Route: 048

REACTIONS (4)
  - DISEASE PROGRESSION [None]
  - DRUG TOXICITY [None]
  - FEBRILE NEUTROPENIA [None]
  - RENAL IMPAIRMENT [None]
